FAERS Safety Report 7471909-X (Version None)
Quarter: 2011Q2

REPORT INFORMATION
  Report Type: 
  Country: None (occurrence: None)
  Receive Date: 20110511
  Receipt Date: 20100701
  Transmission Date: 20111010
  Serious: No
  Sender: FDA-Public Use
  Company Number: A0869595A

PATIENT
  Age: 65 Year
  Sex: Female

DRUGS (2)
  1. TYKERB [Suspect]
     Dosage: 1250MG PER DAY
     Route: 048
     Dates: start: 20100524
  2. HERCEPTIN [Concomitant]

REACTIONS (1)
  - RASH [None]
